FAERS Safety Report 7480208-1 (Version None)
Quarter: 2011Q2

REPORT INFORMATION
  Report Type: 
  Country: None (occurrence: None)
  Receive Date: 20110516
  Receipt Date: 20110505
  Transmission Date: 20111010
  Serious: No
  Sender: FDA-Public Use
  Company Number: US-BIOGENIDEC-2011BI017437

PATIENT
  Age: 34 Year
  Sex: Female

DRUGS (1)
  1. TYSABRI [Suspect]
     Indication: MULTIPLE SCLEROSIS
     Route: 042
     Dates: start: 20100106, end: 20101001

REACTIONS (6)
  - VISUAL ACUITY REDUCED [None]
  - SKIN BURNING SENSATION [None]
  - URINARY INCONTINENCE [None]
  - GAIT DISTURBANCE [None]
  - APHONIA [None]
  - SENSORY DISTURBANCE [None]
